FAERS Safety Report 9921850 (Version 1)
Quarter: 2014Q1

REPORT INFORMATION
  Report Type: Spontaneous
  Country: DK (occurrence: DE)
  Receive Date: 20140225
  Receipt Date: 20140225
  Transmission Date: 20141002
  Serious: Yes (Congenital Anomaly, Other)
  Sender: FDA-Public Use
  Company Number: DE-FRI-1000054547

PATIENT
  Age: 0 None
  Sex: Female
  Weight: 3.3 kg

DRUGS (5)
  1. CITALOPRAM [Suspect]
     Indication: ANXIETY DISORDER
     Dosage: 10 MG
     Route: 064
     Dates: start: 20120315, end: 20120317
  2. CITALOPRAM [Suspect]
     Dosage: 20 MG
     Route: 064
     Dates: start: 20120318, end: 20120516
  3. CITALOPRAM [Suspect]
     Dosage: 10 MG
     Route: 064
     Dates: start: 20120517
  4. L-THYROXIN [Concomitant]
     Indication: HYPOTHYROIDISM
     Dosage: 75 + 100 MCG/DAY ALTERNATIVELY
     Route: 064
     Dates: start: 20111216, end: 20120914
  5. NUTRIFEM [Concomitant]
     Indication: PROPHYLAXIS OF NEURAL TUBE DEFECT
     Dosage: 0.8 MG
     Route: 064
     Dates: start: 20111216, end: 20120907

REACTIONS (5)
  - Atrial septal defect [Unknown]
  - Feeding disorder neonatal [Recovered/Resolved]
  - Somnolence [Recovered/Resolved]
  - Pulmonary valve stenosis congenital [Not Recovered/Not Resolved]
  - Foetal exposure during pregnancy [Unknown]
